FAERS Safety Report 20247399 (Version 3)
Quarter: 2022Q1

REPORT INFORMATION
  Report Type: Report from Study
  Country: FR (occurrence: FR)
  Receive Date: 20211229
  Receipt Date: 20220325
  Transmission Date: 20220423
  Serious: Yes (Other)
  Sender: FDA-Public Use
  Company Number: FR-GLAXOSMITHKLINE-FR2020EME258845

PATIENT
  Age: 67 Year
  Sex: Female

DRUGS (15)
  1. BUDESONIDE [Suspect]
     Active Substance: BUDESONIDE
     Indication: Product used for unknown indication
     Dosage: UNK
  2. BUDESONIDE [Suspect]
     Active Substance: BUDESONIDE
     Dosage: UNK
     Route: 065
  3. MEPOLIZUMAB [Suspect]
     Active Substance: MEPOLIZUMAB
     Indication: Asthma
     Dosage: 100 MG
     Dates: start: 20201127, end: 20210323
  4. MEPOLIZUMAB [Suspect]
     Active Substance: MEPOLIZUMAB
     Indication: Nasal polyps
     Dosage: 100 MG
     Dates: start: 20201127
  5. MEPOLIZUMAB [Suspect]
     Active Substance: MEPOLIZUMAB
     Dosage: 100 MG
     Dates: start: 20201127
  6. MEPOLIZUMAB [Suspect]
     Active Substance: MEPOLIZUMAB
     Dosage: UNK
     Route: 065
     Dates: start: 20201127
  7. MEPOLIZUMAB [Suspect]
     Active Substance: MEPOLIZUMAB
     Dosage: 100 MILLIGRAM
     Route: 042
  8. MEPOLIZUMAB [Suspect]
     Active Substance: MEPOLIZUMAB
     Dosage: 100 MILLIGRAM
     Route: 058
     Dates: start: 20201124
  9. INFLUENZA VIRUS VACCINE [Suspect]
     Active Substance: INFLUENZA VIRUS VACCINE
     Indication: Prophylaxis
     Dosage: UNK, START DATE: 27-NOV-2021
  10. PFIZER-BIONTECH COVID-19 VACCINE [Suspect]
     Active Substance: TOZINAMERAN
     Indication: Product used for unknown indication
     Dosage: UNK, START DATE:??-MAY-2021
  11. SERETIDE [Suspect]
     Active Substance: FLUTICASONE PROPIONATE\SALMETEROL XINAFOATE
     Indication: Asthma
     Dosage: UNK
     Route: 055
     Dates: start: 2017
  12. SERETIDE [Suspect]
     Active Substance: FLUTICASONE PROPIONATE\SALMETEROL XINAFOATE
     Indication: Asthma
     Dosage: UNK
     Route: 055
  13. PFIZER-BIONTECH COVID-19 VACCINE [Suspect]
     Active Substance: TOZINAMERAN
     Indication: Product used for unknown indication
     Dosage: UNK
     Route: 065
     Dates: start: 202105
  14. INFLUENZA VIRUS VACCINE [Suspect]
     Active Substance: INFLUENZA VIRUS VACCINE
     Indication: Prophylaxis
     Dosage: UNK
     Route: 065
     Dates: start: 20211127
  15. MEPOLIZUMAB [Suspect]
     Active Substance: MEPOLIZUMAB
     Indication: Product used for unknown indication
     Dosage: UNK
     Route: 065

REACTIONS (32)
  - Angioedema [Recovered/Resolved]
  - Dry skin [Not Recovered/Not Resolved]
  - Urinary incontinence [Not Recovered/Not Resolved]
  - Bladder disorder [Recovering/Resolving]
  - Feeling cold [Recovered/Resolved]
  - Abdominal pain lower [Not Recovered/Not Resolved]
  - Nasal polyps [Recovered/Resolved]
  - Conjunctivitis [Unknown]
  - Dysuria [Not Recovered/Not Resolved]
  - Erythema [Recovered/Resolved]
  - Photodermatosis [Unknown]
  - White blood cells urine positive [Not Recovered/Not Resolved]
  - Photosensitivity reaction [Recovering/Resolving]
  - Malaise [Unknown]
  - Chills [Recovered/Resolved]
  - Urinary tract inflammation [Unknown]
  - Secretion discharge [Unknown]
  - Patient dissatisfaction with treatment [Not Recovered/Not Resolved]
  - Exposure via skin contact [Not Recovered/Not Resolved]
  - Cystitis noninfective [Recovering/Resolving]
  - Red blood cells urine [Not Recovered/Not Resolved]
  - Micturition urgency [Not Recovered/Not Resolved]
  - Micturition frequency decreased [Unknown]
  - Urinary tract infection [Not Recovered/Not Resolved]
  - Dyspnoea [Not Recovered/Not Resolved]
  - Fatigue [Not Recovered/Not Resolved]
  - Product complaint [Unknown]
  - Accidental underdose [Unknown]
  - Headache [Unknown]
  - Injection site pain [Not Recovered/Not Resolved]
  - Device use issue [Unknown]
  - Product dose omission issue [Unknown]

NARRATIVE: CASE EVENT DATE: 20201127
